FAERS Safety Report 4954550-X (Version None)
Quarter: 2006Q1

REPORT INFORMATION
  Report Type: 
  Country: None (occurrence: None)
  Receive Date: 20060322
  Receipt Date: 20060318
  Transmission Date: 20060701
  Serious: Yes (Other)
  Sender: FDA-Public Use
  Company Number: FABR-11448

PATIENT
  Age: 16 Year
  Sex: Male
  Weight: 61 kg

DRUGS (1)
  1. FABRAZYME [Suspect]
     Indication: FABRY'S DISEASE
     Dosage: 60 MG Q2WKS IV
     Route: 042
     Dates: start: 20051102

REACTIONS (2)
  - ANAPHYLACTOID REACTION [None]
  - RHINORRHOEA [None]
